FAERS Safety Report 6542047-5 (Version None)
Quarter: 2010Q1

REPORT INFORMATION
  Report Type: 
  Country: None (occurrence: None)
  Receive Date: 20100119
  Receipt Date: 20100109
  Transmission Date: 20100710
  Serious: No
  Sender: FDA-Public Use
  Company Number: US-JNJFOC-20100104188

PATIENT
  Sex: Female
  Weight: 72.58 kg

DRUGS (8)
  1. FENTANYL CITRATE [Suspect]
     Indication: LUNG NEOPLASM MALIGNANT
     Route: 062
  2. DILAUDID [Concomitant]
     Indication: PAIN
     Route: 048
  3. LAXATIVES [Concomitant]
     Indication: CONSTIPATION
  4. VITAMIN [Concomitant]
  5. AMLODIPINE [Concomitant]
     Indication: HYPERTENSION
     Route: 048
  6. MEPROBAMATE [Concomitant]
     Indication: ANXIETY
     Route: 048
  7. ULTRAM [Concomitant]
     Indication: MYALGIA
     Route: 048
  8. NEXIUM [Concomitant]
     Indication: GASTRIC DISORDER
     Route: 048

REACTIONS (3)
  - DIZZINESS [None]
  - FEELING ABNORMAL [None]
  - WRONG TECHNIQUE IN DRUG USAGE PROCESS [None]
